FAERS Safety Report 16954549 (Version 10)
Quarter: 2020Q2

REPORT INFORMATION
  Report Type: Spontaneous
  Country: CA (occurrence: CA)
  Receive Date: 20191023
  Receipt Date: 20200624
  Transmission Date: 20200713
  Serious: Yes (Other)
  Sender: FDA-Public Use
  Company Number: CA-CELLTRION INC.-2019CA024603

PATIENT

DRUGS (6)
  1. INFLECTRA [Suspect]
     Active Substance: INFLIXIMAB-DYYB
     Dosage: 300 MG, 0, 2, 6, THEN EVERY 8 WEEKS
     Route: 042
     Dates: start: 20191204, end: 20191204
  2. INFLECTRA [Suspect]
     Active Substance: INFLIXIMAB-DYYB
     Dosage: 300 MG, 6 WEEKS AFTER LAST INFUSION
     Route: 042
     Dates: start: 20200507
  3. INFLECTRA [Suspect]
     Active Substance: INFLIXIMAB-DYYB
     Dosage: 300 MG, 6 WEEKS AFTER LAST INFUSION
     Route: 042
     Dates: start: 20200605
  4. INFLECTRA [Suspect]
     Active Substance: INFLIXIMAB-DYYB
     Dosage: 300 MG, 0, 2, 6, THEN EVERY 8 WEEKS
     Route: 042
     Dates: start: 20191010, end: 20191010
  5. INFLECTRA [Suspect]
     Active Substance: INFLIXIMAB-DYYB
     Dosage: 300 MG, 0, 2, 6, THEN EVERY 8 WEEKS
     Route: 042
     Dates: start: 20190823, end: 20190823
  6. INFLECTRA [Suspect]
     Active Substance: INFLIXIMAB-DYYB
     Indication: CROHN^S DISEASE
     Dosage: 300 MG, 0, 2, 6, THEN EVERY 8 WEEKS
     Route: 042
     Dates: start: 20190712, end: 20190712

REACTIONS (11)
  - Drug level below therapeutic [Unknown]
  - Abscess [Recovering/Resolving]
  - Intentional product use issue [Unknown]
  - Condition aggravated [Not Recovered/Not Resolved]
  - Joint swelling [Unknown]
  - Incorrect dose administered [Unknown]
  - Nausea [Unknown]
  - Oropharyngeal pain [Unknown]
  - Fatigue [Unknown]
  - Vaginal ulceration [Unknown]
  - Off label use [Unknown]

NARRATIVE: CASE EVENT DATE: 2019
